FAERS Safety Report 19873577 (Version 1)
Quarter: 2021Q3

REPORT INFORMATION
  Report Type: Spontaneous
  Country: HN (occurrence: HN)
  Receive Date: 20210923
  Receipt Date: 20210923
  Transmission Date: 20211014
  Serious: Yes (Hospitalization)
  Sender: FDA-Public Use
  Company Number: HN-PFIZER INC-202101204757

PATIENT
  Age: 63 Year
  Sex: Female

DRUGS (1)
  1. LIPITOR [Suspect]
     Active Substance: ATORVASTATIN CALCIUM
     Dosage: 40 MG, DAILY
     Route: 048
     Dates: start: 2018

REACTIONS (7)
  - Visual impairment [Unknown]
  - Fall [Unknown]
  - Dizziness [Unknown]
  - Illness [Unknown]
  - Lower limb fracture [Not Recovered/Not Resolved]
  - COVID-19 [Unknown]
  - Ulcer haemorrhage [Unknown]
